FAERS Safety Report 4825025-3 (Version None)
Quarter: 2005Q4

REPORT INFORMATION
  Report Type: 
  Country: None (occurrence: None)
  Receive Date: 20051014
  Receipt Date: 20050809
  Transmission Date: 20060501
  Serious: No
  Sender: FDA-Public Use
  Company Number: 2005SP002281

PATIENT
  Age: 52 Year
  Sex: Female
  Weight: 49.4421 kg

DRUGS (3)
  1. LUNESTA [Suspect]
     Dosage: 1MG;HS;ORAL
     Route: 048
     Dates: start: 20050806, end: 20050807
  2. CELEXA [Concomitant]
  3. SINGULAIR [Concomitant]

REACTIONS (1)
  - HANGOVER [None]
